FAERS Safety Report 8502991-6 (Version None)
Quarter: 2012Q3

REPORT INFORMATION
  Report Type: 
  Country: None (occurrence: None)
  Receive Date: 20120711
  Receipt Date: 20120706
  Transmission Date: 20120928
  Serious: Yes (Hospitalization)
  Sender: FDA-Public Use
  Company Number: PHHO2010FR16111

PATIENT
  Sex: Female
  Weight: 61 kg

DRUGS (7)
  1. IRBESARTAN [Concomitant]
     Indication: ESSENTIAL HYPERTENSION
     Dosage: 300 MG, QD
     Route: 048
     Dates: start: 20051130
  2. FENOFIBRATE [Concomitant]
     Indication: HYPERCHOLESTEROLAEMIA
     Dosage: 20 MG, UNK
     Route: 048
     Dates: start: 20070801
  3. ACETAMINOPHEN [Concomitant]
     Indication: BONE PAIN
     Dates: start: 20110405
  4. TASIGNA [Suspect]
     Dosage: 400 MG, QD
     Route: 048
     Dates: start: 20110910, end: 20110926
  5. TASIGNA [Suspect]
     Indication: CHRONIC MYELOID LEUKAEMIA
     Dosage: 400 MG, DAILY
     Route: 048
     Dates: start: 20080925, end: 20110215
  6. TASIGNA [Suspect]
     Dosage: 400 MG, DAILY
     Route: 048
     Dates: start: 20110221, end: 20110321
  7. TASIGNA [Suspect]
     Dosage: 400 MG, DAILY
     Route: 048
     Dates: start: 20110405, end: 20110906

REACTIONS (5)
  - FEMORAL ARTERIAL STENOSIS [None]
  - SURGICAL FAILURE [None]
  - PAIN IN EXTREMITY [None]
  - CONCOMITANT DISEASE PROGRESSION [None]
  - ARTERIAL THROMBOSIS LIMB [None]
